FAERS Safety Report 4964259-4 (Version None)
Quarter: 2006Q1

REPORT INFORMATION
  Report Type: 
  Country: None (occurrence: None)
  Receive Date: 20060331
  Receipt Date: 20060314
  Transmission Date: 20060701
  Serious: Yes (Other)
  Sender: FDA-Public Use
  Company Number: US200603003886

PATIENT
  Sex: Female

DRUGS (2)
  1. FORTEO (TERIPARATIDE)  PEN, DISPOSALBE [Suspect]
     Indication: OSTEOPOROSIS
     Dates: start: 20040301
  2. FORTEO [Concomitant]

REACTIONS (9)
  - CONTUSION [None]
  - ERYTHEMA [None]
  - FEELING ABNORMAL [None]
  - FOOT FRACTURE [None]
  - IATROGENIC INJURY [None]
  - INFREQUENT BOWEL MOVEMENTS [None]
  - NERVE INJURY [None]
  - OEDEMA PERIPHERAL [None]
  - PLANTAR FASCIITIS [None]
